FAERS Safety Report 20190361 (Version 1)
Quarter: 2021Q4

REPORT INFORMATION
  Report Type: Spontaneous
  Country: US (occurrence: US)
  Receive Date: 20211215
  Receipt Date: 20211215
  Transmission Date: 20220303
  Serious: Yes (Other)
  Sender: FDA-Public Use
  Company Number: US-BIOVITRUM-2021US11994

PATIENT
  Sex: Male
  Weight: 8 kg

DRUGS (13)
  1. SYNAGIS [Suspect]
     Active Substance: PALIVIZUMAB
     Indication: Lung disorder
     Route: 030
     Dates: start: 20211019
  2. ERYTHROMYCIN 2 % SOLUTION [Concomitant]
  3. SYNAGIS [Suspect]
     Active Substance: PALIVIZUMAB
     Indication: Anomalous pulmonary venous connection
  4. OMEPRAZOLE 100 % POWDER [Concomitant]
  5. SODIUM CHLORIDE 0.45 % IV SOLN [Concomitant]
  6. EPINEPHRINE [Concomitant]
     Active Substance: EPINEPHRINE
  7. LEVOTHYROXINE 100 MCG CAPSULE [Concomitant]
  8. SYNAGIS [Suspect]
     Active Substance: PALIVIZUMAB
     Indication: Premature baby
  9. POLY-VI-SOL 250-50/ML DROPS [Concomitant]
  10. POTASSIUM CHLORIDE 10 MEQ TABLET SA [Concomitant]
  11. ATIVAN 2 MG/ML VIAL [Concomitant]
  12. PREDNISONE 10 MG TAB DS PK [Concomitant]
  13. SILDENAFIL CITRATE 100 % POWDER [Concomitant]

REACTIONS (2)
  - Immunodeficiency [Unknown]
  - Rash macular [Unknown]
